FAERS Safety Report 13435853 (Version 1)
Quarter: 2017Q2

REPORT INFORMATION
  Report Type: Report from Study
  Country: US (occurrence: US)
  Receive Date: 20170413
  Receipt Date: 20170413
  Transmission Date: 20170830
  Serious: Yes (Hospitalization)
  Sender: FDA-Public Use
  Company Number: US-CORCEPT THERAPEUTICS INC.-US-2017CRT000275

PATIENT

DRUGS (5)
  1. KORLYM [Suspect]
     Active Substance: MIFEPRISTONE
     Dosage: 600 MG, QD
     Route: 048
     Dates: start: 201608, end: 201612
  2. KORLYM [Suspect]
     Active Substance: MIFEPRISTONE
     Indication: TYPE 2 DIABETES MELLITUS
     Dosage: 600 MG, QD
     Route: 048
     Dates: start: 201407, end: 201408
  3. KORLYM [Suspect]
     Active Substance: MIFEPRISTONE
     Indication: ESSENTIAL HYPERTENSION
     Dosage: 900 MG, QD
     Route: 048
     Dates: start: 201409, end: 201512
  4. KORLYM [Suspect]
     Active Substance: MIFEPRISTONE
     Dosage: 900 MG, QD
     Route: 048
     Dates: start: 201701
  5. KORLYM [Suspect]
     Active Substance: MIFEPRISTONE
     Indication: CUSHING^S SYNDROME
     Dosage: 300 MG, QD
     Route: 048
     Dates: start: 201405, end: 201406

REACTIONS (4)
  - Oedema [Not Recovered/Not Resolved]
  - Dyspnoea [Unknown]
  - Gait disturbance [Unknown]
  - Fluid retention [Not Recovered/Not Resolved]

NARRATIVE: CASE EVENT DATE: 20170324
